FAERS Safety Report 7238070-8 (Version None)
Quarter: 2011Q1

REPORT INFORMATION
  Report Type: 
  Country: None (occurrence: None)
  Receive Date: 20110121
  Receipt Date: 20110117
  Transmission Date: 20110831
  Serious: Yes (Death)
  Sender: FDA-Public Use
  Company Number: B0692990A

PATIENT
  Sex: Female

DRUGS (2)
  1. TYVERB [Suspect]
     Dosage: 1250MG PER DAY
     Route: 048
     Dates: start: 20100928, end: 20110101
  2. XELODA [Suspect]
     Dosage: 1650MG PER DAY
     Route: 048
     Dates: end: 20110101

REACTIONS (2)
  - DISEASE PROGRESSION [None]
  - METASTASES TO LIVER [None]
